FAERS Safety Report 10680392 (Version 5)
Quarter: 2017Q4

REPORT INFORMATION
  Report Type: Spontaneous
  Country: US (occurrence: US)
  Receive Date: 20141229
  Receipt Date: 20171218
  Transmission Date: 20180320
  Serious: Yes (Death, Hospitalization, Other)
  Sender: FDA-Public Use
  Company Number: US-SA-2014SA000468

PATIENT
  Age: 62 Year
  Sex: Male

DRUGS (4)
  1. PLAVIX [Suspect]
     Active Substance: CLOPIDOGREL BISULFATE
     Indication: STENT PLACEMENT
     Route: 065
     Dates: start: 20041213, end: 20130805
  2. ASPIRIN. [Suspect]
     Active Substance: ASPIRIN
     Route: 065
     Dates: start: 20041213
  3. PLAVIX [Suspect]
     Active Substance: CLOPIDOGREL BISULFATE
     Indication: MYOCARDIAL INFARCTION
     Route: 065
     Dates: start: 20041213, end: 20130805
  4. PLAVIX [Suspect]
     Active Substance: CLOPIDOGREL BISULFATE
     Indication: ACUTE CORONARY SYNDROME
     Route: 065
     Dates: start: 20041213, end: 20130805

REACTIONS (19)
  - Syncope [Recovered/Resolved]
  - Dyspnoea [Recovered/Resolved]
  - Muscle haemorrhage [Unknown]
  - Anaemia [Recovered/Resolved]
  - Gastrointestinal haemorrhage [Recovered/Resolved]
  - Haemoglobin decreased [Recovered/Resolved]
  - Oesophageal haemorrhage [Unknown]
  - Injury [Unknown]
  - Asthenia [Recovered/Resolved]
  - Melaena [Recovered/Resolved]
  - Fall [Recovered/Resolved]
  - Hypotension [Recovered/Resolved]
  - Erosive oesophagitis [Unknown]
  - Constipation [Unknown]
  - Head injury [Recovered/Resolved]
  - Malaise [Recovered/Resolved]
  - Gastritis [Recovered/Resolved]
  - Rectal haemorrhage [Unknown]
  - Abdominal pain lower [Unknown]

NARRATIVE: CASE EVENT DATE: 20120201
